FAERS Safety Report 9402327 (Version 1)
Quarter: 2013Q3

REPORT INFORMATION
  Report Type: Spontaneous
  Country: US (occurrence: None)
  Receive Date: 20130712
  Receipt Date: 20130712
  Transmission Date: 20140515
  Serious: Yes (Hospitalization)
  Sender: FDA-Public Use
  Company Number: None

PATIENT
  Age: 30 None
  Sex: Female
  Weight: 66.4 kg

DRUGS (1)
  1. ACTEMRA (TOXILZUMAB) 200MG VIAL GENENTECH [Suspect]
     Indication: RENAL TRANSPLANT
     Dosage: . MG/KG-356MG ONCE IVPB
     Dates: start: 20130625

REACTIONS (5)
  - Confusional state [None]
  - Dysarthria [None]
  - Vision blurred [None]
  - Paraesthesia [None]
  - Muscular weakness [None]
